FAERS Safety Report 12624603 (Version 1)
Quarter: 2016Q3

REPORT INFORMATION
  Report Type: Spontaneous
  Country: ES (occurrence: ES)
  Receive Date: 20160805
  Receipt Date: 20160805
  Transmission Date: 20161109
  Serious: Yes (Other)
  Sender: FDA-Public Use
  Company Number: ES-ZYDUS-011837

PATIENT
  Age: 32 Year
  Sex: Male

DRUGS (4)
  1. LEVOFLOXACIN. [Suspect]
     Active Substance: LEVOFLOXACIN
     Indication: HELICOBACTER GASTRITIS
     Dosage: 1000 MG TWICE A DAY
     Route: 048
     Dates: start: 20150116, end: 20150117
  2. PLANTAGO OVATA [Suspect]
     Active Substance: PLANTAGO OVATA LEAF
     Indication: ANAL FISSURE
     Dosage: 3.5 GR/DAY
     Route: 048
     Dates: start: 20140911, end: 20150117
  3. OMEPRAZOLE. [Suspect]
     Active Substance: OMEPRAZOLE
     Indication: GASTRITIS
     Dosage: 40 MG TWICE A DAY
     Route: 048
     Dates: start: 20150109, end: 20150117
  4. LEVOFLOXACIN. [Suspect]
     Active Substance: LEVOFLOXACIN
     Indication: GASTRITIS
     Dosage: 1000 MG TWICE A DAY
     Route: 048
     Dates: start: 20150109, end: 20150117

REACTIONS (2)
  - Genital rash [Recovering/Resolving]
  - Urticaria [Recovering/Resolving]

NARRATIVE: CASE EVENT DATE: 20150117
